FAERS Safety Report 25835046 (Version 2)
Quarter: 2025Q4

REPORT INFORMATION
  Report Type: Spontaneous
  Country: JP (occurrence: JP)
  Receive Date: 20250923
  Receipt Date: 20251125
  Transmission Date: 20260118
  Serious: Yes (Other)
  Sender: ROCHE
  Company Number: JP-CHUGAI-2025029682

PATIENT
  Sex: Male

DRUGS (2)
  1. AVASTIN [Suspect]
     Active Substance: BEVACIZUMAB
     Indication: Hepatocellular carcinoma
     Dosage: UNK
     Route: 042
     Dates: start: 20230404, end: 20250814
  2. TECENTRIQ [Suspect]
     Active Substance: ATEZOLIZUMAB
     Indication: Hepatocellular carcinoma
     Dosage: UNK
     Route: 042
     Dates: start: 20230404, end: 20250814

REACTIONS (13)
  - Cataract [Unknown]
  - Diabetes mellitus [Unknown]
  - Retinal haemorrhage [Unknown]
  - Nephrotic syndrome [Unknown]
  - Neutrophil count decreased [Unknown]
  - Diarrhoea [Unknown]
  - Age-related macular degeneration [Unknown]
  - Myocarditis [Unknown]
  - Cholangitis sclerosing [Unknown]
  - Thyroid disorder [Unknown]
  - White blood cell count decreased [Not Recovered/Not Resolved]
  - Hypertension [Unknown]
  - Red blood cell count decreased [Unknown]

NARRATIVE: CASE EVENT DATE: 20250101
